FAERS Safety Report 9792539 (Version 1)
Quarter: 2014Q1

REPORT INFORMATION
  Report Type: Spontaneous
  Country: US (occurrence: US)
  Receive Date: 20140102
  Receipt Date: 20140102
  Transmission Date: 20141002
  Serious: No
  Sender: FDA-Public Use
  Company Number: US-TEVA-453346USA

PATIENT
  Sex: Female
  Weight: 55.39 kg

DRUGS (1)
  1. PROAIR HFA [Suspect]
     Indication: BRONCHITIS

REACTIONS (1)
  - Dizziness [Not Recovered/Not Resolved]
